FAERS Safety Report 25464785 (Version 3)
Quarter: 2025Q3

REPORT INFORMATION
  Report Type: Spontaneous
  Country: EU (occurrence: EU)
  Receive Date: 20250622
  Receipt Date: 20250815
  Transmission Date: 20251020
  Serious: Yes (Hospitalization, Other)
  Sender: AUROBINDO
  Company Number: EU-JNJFOC-20250368462

PATIENT
  Age: 66 Year
  Sex: Male
  Weight: 93.4 kg

DRUGS (30)
  1. LENALIDOMIDE [Suspect]
     Active Substance: LENALIDOMIDE
     Indication: Plasma cell myeloma
     Route: 065
  2. DARATUMUMAB\HYALURONIDASE-FIHJ [Suspect]
     Active Substance: DARATUMUMAB\HYALURONIDASE-FIHJ
     Indication: Plasma cell myeloma
     Route: 058
     Dates: start: 20250303, end: 20250303
  3. DARATUMUMAB\HYALURONIDASE-FIHJ [Suspect]
     Active Substance: DARATUMUMAB\HYALURONIDASE-FIHJ
     Route: 058
     Dates: start: 20250310, end: 20250310
  4. DARATUMUMAB\HYALURONIDASE-FIHJ [Suspect]
     Active Substance: DARATUMUMAB\HYALURONIDASE-FIHJ
     Route: 058
     Dates: start: 20250425
  5. DARATUMUMAB\HYALURONIDASE-FIHJ [Suspect]
     Active Substance: DARATUMUMAB\HYALURONIDASE-FIHJ
     Route: 058
     Dates: start: 20250425
  6. DEXAMETHASONE [Suspect]
     Active Substance: DEXAMETHASONE
     Indication: Plasma cell myeloma
     Route: 048
     Dates: start: 20250226, end: 20250226
  7. VELCADE [Suspect]
     Active Substance: BORTEZOMIB
     Indication: Plasma cell myeloma
     Route: 065
  8. PANTOPRAZOLE [Concomitant]
     Active Substance: PANTOPRAZOLE
     Indication: Prophylaxis
     Dosage: 40 MILLIGRAM, ONCE A DAY
     Route: 048
  9. AMLODIPINE [Concomitant]
     Active Substance: AMLODIPINE BESYLATE
     Indication: Hypertension
     Dosage: 5 MILLIGRAM, TWO TIMES A DAY
     Route: 048
  10. VALSARTAN [Concomitant]
     Active Substance: VALSARTAN
     Indication: Hypertension
     Dosage: 160 MILLIGRAM, TWO TIMES A DAY
     Route: 048
     Dates: start: 202503
  11. ATORVASTATIN [Concomitant]
     Active Substance: ATORVASTATIN
     Indication: Hypertension
     Dosage: 20 MILLIGRAM, ONCE A DAY
     Route: 048
  12. LEVOTHYROXINE SODIUM [Concomitant]
     Active Substance: LEVOTHYROXINE SODIUM
     Indication: Hypothyroidism
     Dosage: 25 MILLIGRAM, ONCE A DAY
     Route: 048
  13. NOVALGINA [Concomitant]
     Active Substance: ACETAMINOPHEN\CAFFEINE
     Indication: Back pain
     Dosage: 1 GRAM, FOUR TIMES/DAY
     Route: 048
     Dates: start: 20250225
  14. NOVALGINA [Concomitant]
     Active Substance: ACETAMINOPHEN\CAFFEINE
     Dosage: 500 MILLIGRAM, 3 TIMES A DAY
     Route: 048
     Dates: start: 20250225, end: 20250225
  15. SULFAMETHOXAZOLE\TRIMETHOPRIM [Concomitant]
     Active Substance: SULFAMETHOXAZOLE\TRIMETHOPRIM
     Indication: Prophylaxis
     Dosage: 960 MILLIGRAM, ONCE A DAY
     Route: 048
     Dates: start: 20250225
  16. ACYCLOVIR [Concomitant]
     Active Substance: ACYCLOVIR
     Indication: Product used for unknown indication
     Dosage: 400 MILLIGRAM, TWO TIMES A DAY
     Route: 048
     Dates: start: 20250225
  17. NALOXONE HYDROCHLORIDE\OXYCODONE HYDROCHLORIDE [Concomitant]
     Active Substance: NALOXONE HYDROCHLORIDE\OXYCODONE HYDROCHLORIDE
     Indication: Back pain
     Dosage: DAILY DOSE 40/20 MG, TWO TIMES A DAY, TWO TIMES A DAY, TWO TIMES A DAY
     Route: 048
     Dates: start: 20250224, end: 20250224
  18. NALOXONE HYDROCHLORIDE\OXYCODONE HYDROCHLORIDE [Concomitant]
     Active Substance: NALOXONE HYDROCHLORIDE\OXYCODONE HYDROCHLORIDE
     Dosage: 10/5 MG, ONCE A DAY
     Route: 048
     Dates: start: 20250227, end: 20250302
  19. Ibuflam akut [Concomitant]
     Indication: Back pain
     Dosage: 600 MILLIGRAM, ONCE A DAY
     Route: 048
     Dates: start: 20250225, end: 20250225
  20. Ibuflam akut [Concomitant]
     Dosage: 600 MILLIGRAM, 3 TIMES A DAY
     Route: 048
     Dates: start: 20250226, end: 20250226
  21. POLYETHYLENE GLYCOL 3350\POTASSIUM CHLORIDE\SODIUM BICARBONATE\SODIUM [Concomitant]
     Active Substance: POLYETHYLENE GLYCOL 3350\POTASSIUM CHLORIDE\SODIUM BICARBONATE\SODIUM CHLORIDE
     Indication: Product used for unknown indication
     Route: 048
     Dates: start: 20250225
  22. DALTEPARIN SODIUM [Concomitant]
     Active Substance: DALTEPARIN SODIUM
     Indication: Product used for unknown indication
     Dosage: 2500 INTERNATIONAL UNIT, ONCE A DAY
     Route: 058
     Dates: start: 20250224
  23. ZOMETA [Concomitant]
     Active Substance: ZOLEDRONIC ACID
     Indication: Product used for unknown indication
     Route: 042
     Dates: start: 20250228
  24. Calcium d3 al [Concomitant]
     Indication: Prophylaxis
     Dosage: 400 MILLIGRAM, TWO TIMES A DAY
     Route: 065
  25. FEBUXOSTAT [Concomitant]
     Active Substance: FEBUXOSTAT
     Indication: Prophylaxis
     Route: 065
  26. PREGABALIN [Concomitant]
     Active Substance: PREGABALIN
     Indication: Product used for unknown indication
     Route: 065
  27. TADALAFIL [Concomitant]
     Active Substance: TADALAFIL
     Indication: Product used for unknown indication
     Route: 065
  28. ABSTRAL [Concomitant]
     Active Substance: FENTANYL CITRATE
     Indication: Back pain
     Route: 048
     Dates: start: 20250429
  29. ACETAMINOPHEN [Concomitant]
     Active Substance: ACETAMINOPHEN
     Indication: Back pain
     Route: 065
  30. MOVICOL [Concomitant]
     Active Substance: POLYETHYLENE GLYCOL 3350\POTASSIUM CHLORIDE\SODIUM BICARBONATE\SODIUM CHLORIDE
     Indication: Prophylaxis
     Route: 065
     Dates: start: 202503

REACTIONS (10)
  - Pneumonia [Recovering/Resolving]
  - Sepsis [Recovered/Resolved]
  - Chronic kidney disease [Not Recovered/Not Resolved]
  - Lymphopenia [Not Recovered/Not Resolved]
  - Atrial fibrillation [Recovered/Resolved]
  - Oedema peripheral [Not Recovered/Not Resolved]
  - Dyspnoea [Recovered/Resolved]
  - Anaemia [Not Recovered/Not Resolved]
  - Nausea [Recovered/Resolved]
  - Cough [Recovered/Resolved]

NARRATIVE: CASE EVENT DATE: 20250301
